FAERS Safety Report 6311668-7 (Version None)
Quarter: 2009Q3

REPORT INFORMATION
  Report Type: 
  Country: None (occurrence: None)
  Receive Date: 20090817
  Receipt Date: 20090803
  Transmission Date: 20100115
  Serious: Yes (Other)
  Sender: FDA-Public Use
  Company Number: US-SOLVAY-00209004349

PATIENT
  Age: 62 Year
  Sex: Male

DRUGS (1)
  1. ANDROGEL [Suspect]
     Indication: BLOOD TESTOSTERONE DECREASED
     Dosage: DAILY DOSE:  UNKNOWN
     Route: 062

REACTIONS (4)
  - DYSPNOEA [None]
  - HYPERHIDROSIS [None]
  - RASH GENERALISED [None]
  - SINUS TACHYCARDIA [None]
